FAERS Safety Report 6767396-7 (Version None)
Quarter: 2010Q2

REPORT INFORMATION
  Report Type: 
  Country: None (occurrence: None)
  Receive Date: 20100614
  Receipt Date: 20100608
  Transmission Date: 20101027
  Serious: Yes (Hospitalization)
  Sender: FDA-Public Use
  Company Number: US-RB-008835-10

PATIENT
  Age: 50 Year
  Sex: Male

DRUGS (1)
  1. SUBOXONE [Suspect]
     Route: 060
     Dates: start: 20091001

REACTIONS (5)
  - DEHYDRATION [None]
  - DRUG DEPENDENCE [None]
  - INSOMNIA [None]
  - PAIN [None]
  - VOMITING [None]
